FAERS Safety Report 22032610 (Version 1)
Quarter: 2023Q1

REPORT INFORMATION
  Report Type: Report from Study
  Country: ES (occurrence: ES)
  Receive Date: 20230224
  Receipt Date: 20230224
  Transmission Date: 20230418
  Serious: Yes (Hospitalization)
  Sender: FDA-Public Use
  Company Number: None

PATIENT
  Age: 45 Year
  Sex: Female

DRUGS (1)
  1. RINVOQ [Suspect]
     Active Substance: UPADACITINIB
     Indication: Rheumatoid arthritis
     Dosage: 15 MG / 24 HORAS
     Route: 048
     Dates: start: 20210712, end: 20220225

REACTIONS (1)
  - Osteomyelitis bacterial [Recovering/Resolving]

NARRATIVE: CASE EVENT DATE: 20220225
